FAERS Safety Report 4359120-2 (Version None)
Quarter: 2004Q2

REPORT INFORMATION
  Report Type: 
  Country: None (occurrence: None)
  Receive Date: 20040517
  Receipt Date: 20040517
  Transmission Date: 20050107
  Serious: Yes (Life-Threatening, Hospitalization)
  Sender: FDA-Public Use
  Company Number: None

PATIENT
  Age: 77 Year
  Sex: Male
  Weight: 84.3 kg

DRUGS (7)
  1. ZYPREXA ZYDIS [Suspect]
     Dosage: 2.5 MG PO BID; 25 MG PO QHS; 5 MG PO PRN
     Route: 048
     Dates: start: 20040318, end: 20040319
  2. ZYPREXA ZYDIS [Suspect]
     Dosage: 2.5 MG PO BID; 25 MG PO QHS; 5 MG PO PRN
     Route: 048
     Dates: start: 20040319, end: 20040323
  3. ZYPREXA ZYDIS [Suspect]
     Dosage: 2.5 MG PO BID; 25 MG PO QHS; 5 MG PO PRN
     Route: 048
     Dates: start: 20040325, end: 20040329
  4. HALDOL [Suspect]
     Dosage: 1MG IV Q4HOUR PRN; 1MG IV Q8HOUR PRN; 2 MG IV Q6HOUR PRN; 2MG IV QHS
     Route: 042
     Dates: start: 20040316, end: 20040322
  5. HALDOL [Suspect]
     Dosage: 1MG IV Q4HOUR PRN; 1MG IV Q8HOUR PRN; 2 MG IV Q6HOUR PRN; 2MG IV QHS
     Route: 042
     Dates: start: 20040322, end: 20040325
  6. HALDOL [Suspect]
     Dosage: 1MG IV Q4HOUR PRN; 1MG IV Q8HOUR PRN; 2 MG IV Q6HOUR PRN; 2MG IV QHS
     Route: 042
     Dates: start: 20040325, end: 20040326
  7. HALDOL [Suspect]
     Dosage: 1MG IV Q4HOUR PRN; 1MG IV Q8HOUR PRN; 2 MG IV Q6HOUR PRN; 2MG IV QHS
     Route: 042
     Dates: start: 20040325, end: 20040326

REACTIONS (3)
  - HYPOXIA [None]
  - LIVEDO RETICULARIS [None]
  - NEUROLEPTIC MALIGNANT SYNDROME [None]
